FAERS Safety Report 6462557-9 (Version None)
Quarter: 2009Q4

REPORT INFORMATION
  Report Type: 
  Country: None (occurrence: None)
  Receive Date: 20091130
  Receipt Date: 20091120
  Transmission Date: 20100525
  Serious: Yes (Other)
  Sender: FDA-Public Use
  Company Number: PHHY2009JP47158

PATIENT
  Sex: Male

DRUGS (8)
  1. NEORAL [Suspect]
     Indication: STEM CELL TRANSPLANT
     Dosage: 10 MG/DAY
     Route: 048
     Dates: start: 20070301
  2. PREDNISOLONE [Suspect]
     Indication: STEM CELL TRANSPLANT
     Dosage: 3 MG
     Route: 048
     Dates: start: 20070301
  3. URSO 250 [Concomitant]
     Dosage: 300 MG
     Route: 048
     Dates: start: 20070301
  4. VFEND [Concomitant]
     Dosage: 200 MG
     Route: 048
     Dates: start: 20070301
  5. EPADEL [Concomitant]
     Indication: HYPERLIPIDAEMIA
     Dosage: 1800 MG
     Route: 048
     Dates: start: 20081105
  6. ZANTAC [Concomitant]
     Dosage: 75 MG
     Route: 048
     Dates: start: 20081126
  7. BEZATOL - SLOW RELEASE [Concomitant]
     Indication: HYPERLIPIDAEMIA
     Dosage: 200 MG
     Route: 048
     Dates: start: 20081105
  8. CRAVIT [Concomitant]
     Dosage: 400 MG
     Route: 048
     Dates: start: 20091104

REACTIONS (3)
  - BLOOD AMYLASE INCREASED [None]
  - LIPASE INCREASED [None]
  - PANCREATIC ENZYMES INCREASED [None]
